FAERS Safety Report 13935094 (Version 1)
Quarter: 2017Q3

REPORT INFORMATION
  Report Type: Spontaneous
  Country: US (occurrence: None)
  Receive Date: 20170901
  Receipt Date: 20170901
  Transmission Date: 20171127
  Serious: Yes (Hospitalization)
  Sender: FDA-Public Use
  Company Number: None

PATIENT
  Age: 66 Year
  Sex: Male
  Weight: 97 kg

DRUGS (2)
  1. CARBOPLATIN. [Suspect]
     Active Substance: CARBOPLATIN
     Dates: end: 20160615
  2. ETOPOSIDE (VP-16) [Suspect]
     Active Substance: ETOPOSIDE
     Dates: end: 20160617

REACTIONS (9)
  - Cough [None]
  - Amnesia [None]
  - Pleuritic pain [None]
  - Malaise [None]
  - Pneumonia [None]
  - Acute kidney injury [None]
  - Decreased appetite [None]
  - Febrile neutropenia [None]
  - Septic shock [None]

NARRATIVE: CASE EVENT DATE: 20160626
